FAERS Safety Report 4530251-7 (Version None)
Quarter: 2004Q4

REPORT INFORMATION
  Report Type: 
  Country: None (occurrence: None)
  Receive Date: 20041215
  Receipt Date: 20041202
  Transmission Date: 20050328
  Serious: Yes (Other)
  Sender: FDA-Public Use
  Company Number: 2004097851

PATIENT
  Age: 76 Year
  Sex: Female

DRUGS (10)
  1. NEURONTIN [Suspect]
     Indication: ILL-DEFINED DISORDER
     Dosage: 300 MG (100 MG, 3 IN 1 D), ORAL
     Route: 048
     Dates: start: 20041109, end: 20041123
  2. SINEMET [Suspect]
     Indication: ILL-DEFINED DISORDER
  3. CLOPIDOGREL BISULFATE [Concomitant]
  4. DONEPEZIL HCL [Concomitant]
  5. ACETAMINOPHEN [Concomitant]
  6. CALCIUM (CALCIUM) [Concomitant]
  7. CITALOPRAM HYDROBROMIDE [Concomitant]
  8. ALL OTHER THERAPEUTIC PRODUCTS (ALL OTHER THERAPEUTIC PRODUCTS) [Concomitant]
  9. MORPHINE SULFATE [Concomitant]
  10. PANTOPRAZOLE (PANTOPRAZOLE) [Concomitant]

REACTIONS (5)
  - CONSTIPATION [None]
  - DIARRHOEA [None]
  - PANCREATITIS [None]
  - URINARY TRACT INFECTION [None]
  - WEIGHT DECREASED [None]
